FAERS Safety Report 5901501-7 (Version None)
Quarter: 2008Q3

REPORT INFORMATION
  Report Type: 
  Country: None (occurrence: None)
  Receive Date: 20080926
  Receipt Date: 20080926
  Transmission Date: 20090109
  Serious: No
  Sender: FDA-Public Use
  Company Number: None

PATIENT
  Age: 68 Year
  Sex: Male

DRUGS (1)
  1. RESTORIL [Suspect]
     Indication: INSOMNIA
     Dosage: 15 MG PO X1
     Route: 048
     Dates: start: 20080501

REACTIONS (4)
  - AGGRESSION [None]
  - ANGER [None]
  - HEART RATE INCREASED [None]
  - PARANOIA [None]
